FAERS Safety Report 5765968-X (Version None)
Quarter: 2008Q2

REPORT INFORMATION
  Report Type: 
  Country: None (occurrence: None)
  Receive Date: 20080611
  Receipt Date: 20080221
  Transmission Date: 20081010
  Serious: Yes (Hospitalization)
  Sender: FDA-Public Use
  Company Number: US-BRISTOL-MYERS SQUIBB COMPANY-14097356

PATIENT
  Age: 54 Year
  Sex: Male

DRUGS (10)
  1. CARBIDOPA + LEVODOPA [Suspect]
     Route: 048
     Dates: start: 20050825, end: 20060929
  2. ACETAMINOPHEN [Concomitant]
  3. BACLOFEN [Concomitant]
  4. DIPHENHYDRAMINE HCL [Concomitant]
  5. DOCUSATE SODIUM [Concomitant]
  6. HALOPERIDOL [Concomitant]
  7. LORAZEPAM [Concomitant]
  8. MILK OF MAGNESIA [Concomitant]
  9. OMEPRAZOLE [Concomitant]
  10. ROPINIROLE [Concomitant]

REACTIONS (1)
  - DYSKINESIA [None]
